FAERS Safety Report 4315360-X (Version None)
Quarter: 2004Q1

REPORT INFORMATION
  Report Type: 
  Country: None (occurrence: None)
  Receive Date: 20040309
  Receipt Date: 20040219
  Transmission Date: 20041129
  Serious: Yes (Hospitalization, Other)
  Sender: FDA-Public Use
  Company Number: USA030639171

PATIENT
  Age: 77 Year
  Sex: Female
  Weight: 50 kg

DRUGS (14)
  1. FORTEO [Suspect]
     Indication: OSTEOPOROSIS
     Dates: start: 20030211
  2. PLAQUENIL [Concomitant]
  3. HEPARIN [Concomitant]
  4. DURAGESIC [Concomitant]
  5. PREDNISONE [Concomitant]
  6. THREE HEART MEDICATIONS [Concomitant]
  7. HEART MEDICATION [Concomitant]
  8. CALCIUM PLUS D [Concomitant]
  9. PROTONIX [Concomitant]
  10. ELAVIL [Concomitant]
  11. XANAX [Concomitant]
  12. ZOCOR [Concomitant]
  13. PRINZIDE [Concomitant]
  14. COMBIVENT [Concomitant]

REACTIONS (11)
  - ATRIAL FIBRILLATION [None]
  - BLOOD PRESSURE DECREASED [None]
  - CARDIAC FAILURE CONGESTIVE [None]
  - CONTUSION [None]
  - HEART RATE DECREASED [None]
  - HEART RATE INCREASED [None]
  - HYPERTENSION [None]
  - INJECTION SITE HAEMORRHAGE [None]
  - LUNG DISORDER [None]
  - PHARMACEUTICAL PRODUCT COMPLAINT [None]
  - PYREXIA [None]
